FAERS Safety Report 23900558 (Version 2)
Quarter: 2024Q4

REPORT INFORMATION
  Report Type: Spontaneous
  Country: US (occurrence: US)
  Receive Date: 20240526
  Receipt Date: 20241230
  Transmission Date: 20250115
  Serious: No
  Sender: ROCHE
  Company Number: US-ROCHE-3459514

PATIENT
  Sex: Female

DRUGS (1)
  1. OCREVUS [Suspect]
     Active Substance: OCRELIZUMAB
     Indication: Relapsing-remitting multiple sclerosis
     Dosage: STARTED END OF /OCT/2023 OR THE BEGINNING OF /NOV/2023. STOPPED BEFORE THE SECOND HALF DOSE.
     Route: 042
     Dates: start: 2023, end: 2023

REACTIONS (1)
  - Maternal exposure before pregnancy [Unknown]
